FAERS Safety Report 8607903-2 (Version None)
Quarter: 2012Q3

REPORT INFORMATION
  Report Type: 
  Country: None (occurrence: None)
  Receive Date: 20120821
  Receipt Date: 20120130
  Transmission Date: 20120928
  Serious: No
  Sender: FDA-Public Use
  Company Number: US-MYLANLABS-2012S1002269

PATIENT
  Sex: Female

DRUGS (1)
  1. NISOLDIPINE [Suspect]

REACTIONS (2)
  - DRY SKIN [None]
  - DRY MOUTH [None]
